FAERS Safety Report 9099531 (Version 3)
Quarter: 2013Q1

REPORT INFORMATION
  Report Type: Spontaneous
  Country: US (occurrence: US)
  Receive Date: 20130214
  Receipt Date: 20130321
  Transmission Date: 20140127
  Serious: No
  Sender: FDA-Public Use
  Company Number: US-ROXANE LABORATORIES, INC.-2013-RO-00248RO

PATIENT
  Sex: Female
  Weight: 77 kg

DRUGS (1)
  1. BUTORPHANOL [Suspect]
     Indication: PAIN
     Route: 045

REACTIONS (2)
  - Drug ineffective [Recovered/Resolved]
  - Product quality issue [Recovered/Resolved]
